FAERS Safety Report 9249996 (Version 6)
Quarter: 2016Q4

REPORT INFORMATION
  Report Type: Report from Study
  Country: CA (occurrence: CA)
  Receive Date: 20130424
  Receipt Date: 20161212
  Transmission Date: 20170207
  Serious: Yes (Death, Hospitalization, Other)
  Sender: FDA-Public Use
  Company Number: CA-ROCHE-1172135

PATIENT
  Age: 32 Year
  Sex: Male
  Weight: 127 kg

DRUGS (8)
  1. RITUXAN [Suspect]
     Active Substance: RITUXIMAB
     Indication: RHEUMATOID ARTHRITIS
     Route: 042
     Dates: start: 20121203, end: 20161003
  2. DIPHENHYDRAMINE HCL [Concomitant]
     Active Substance: DIPHENHYDRAMINE HYDROCHLORIDE
     Indication: PREMEDICATION
     Route: 048
     Dates: start: 20121203
  3. RITUXAN [Suspect]
     Active Substance: RITUXIMAB
     Route: 042
     Dates: start: 20130702
  4. ACETAMINOPHEN. [Concomitant]
     Active Substance: ACETAMINOPHEN
     Indication: PREMEDICATION
     Route: 048
     Dates: start: 20121203
  5. METHOTREXATE. [Concomitant]
     Active Substance: METHOTREXATE
  6. CELEBREX [Concomitant]
     Active Substance: CELECOXIB
  7. METHYLPREDNISOLONE. [Concomitant]
     Active Substance: METHYLPREDNISOLONE
     Route: 042
     Dates: start: 20121203
  8. FOLIC ACID. [Concomitant]
     Active Substance: FOLIC ACID

REACTIONS (14)
  - Blood pressure increased [Unknown]
  - Weight increased [Unknown]
  - Oxygen saturation decreased [Unknown]
  - Myocardial infarction [Fatal]
  - Musculoskeletal pain [Not Recovered/Not Resolved]
  - Silent myocardial infarction [Unknown]
  - Heart rate irregular [Not Recovered/Not Resolved]
  - Infusion related reaction [Unknown]
  - Heart rate increased [Not Recovered/Not Resolved]
  - Respiratory rate increased [Unknown]
  - Blood pressure fluctuation [Unknown]
  - Cardiomegaly [Unknown]
  - Musculoskeletal stiffness [Not Recovered/Not Resolved]
  - Scratch [Unknown]

NARRATIVE: CASE EVENT DATE: 20121217
